FAERS Safety Report 7564713-5 (Version None)
Quarter: 2011Q2

REPORT INFORMATION
  Report Type: 
  Country: None (occurrence: None)
  Receive Date: 20110622
  Receipt Date: 20101119
  Transmission Date: 20111010
  Serious: Yes (Other)
  Sender: FDA-Public Use
  Company Number: US-MYLANLABS-2010S1017330

PATIENT
  Age: 48 Year
  Sex: Female

DRUGS (7)
  1. TRICOR [Concomitant]
     Route: 048
  2. NASONEX [Concomitant]
     Route: 048
  3. CLOZAPINE [Suspect]
     Route: 048
     Dates: end: 20101018
  4. SEROQUEL [Concomitant]
     Route: 048
  5. CLOZAPINE [Suspect]
     Indication: SCHIZOAFFECTIVE DISORDER
     Route: 048
     Dates: end: 20101018
  6. GLIPIZIDE [Concomitant]
     Route: 048
  7. LIPITOR [Concomitant]
     Route: 048

REACTIONS (2)
  - LEUKOPENIA [None]
  - GRANULOCYTOPENIA [None]
